FAERS Safety Report 5476772-4 (Version None)
Quarter: 2007Q4

REPORT INFORMATION
  Report Type: 
  Country: None (occurrence: None)
  Receive Date: 20071004
  Receipt Date: 20070927
  Transmission Date: 20080405
  Serious: Yes (Other)
  Sender: FDA-Public Use
  Company Number: US-JNJFOC-20070702922

PATIENT
  Sex: Female
  Weight: 74.84 kg

DRUGS (1)
  1. ORTHO EVRA [Suspect]
     Indication: CONTRACEPTION

REACTIONS (8)
  - ABDOMINAL PAIN [None]
  - ARTERIAL THROMBOSIS LIMB [None]
  - DEEP VEIN THROMBOSIS [None]
  - DIZZINESS [None]
  - NAUSEA [None]
  - PHLEBITIS [None]
  - SEPTIC PHLEBITIS [None]
  - VERTIGO [None]
